FAERS Safety Report 8234242-4 (Version None)
Quarter: 2012Q1

REPORT INFORMATION
  Report Type: 
  Country: None (occurrence: None)
  Receive Date: 20120326
  Receipt Date: 20120315
  Transmission Date: 20120608
  Serious: Yes (Hospitalization)
  Sender: FDA-Public Use
  Company Number: US-JNJFOC-20120308293

PATIENT
  Sex: Male
  Weight: 88 kg

DRUGS (1)
  1. ZYTIGA [Suspect]
     Indication: PROSTATE CANCER METASTATIC
     Route: 048
     Dates: start: 20110801, end: 20120201

REACTIONS (2)
  - DRUG DOSE OMISSION [None]
  - GASTRIC DISORDER [None]
